FAERS Safety Report 5463976-X (Version None)
Quarter: 2007Q3

REPORT INFORMATION
  Report Type: 
  Country: None (occurrence: None)
  Receive Date: 20070921
  Receipt Date: 20070911
  Transmission Date: 20080115
  Serious: Yes (Hospitalization, Other)
  Sender: FDA-Public Use
  Company Number: HQWYE131913SEP07

PATIENT
  Sex: Male

DRUGS (1)
  1. SIROLIMUS [Suspect]
     Route: 048
     Dates: start: 20070725

REACTIONS (1)
  - LEFT VENTRICULAR FAILURE [None]
